FAERS Safety Report 6509455-X (Version None)
Quarter: 2009Q4

REPORT INFORMATION
  Report Type: 
  Country: None (occurrence: None)
  Receive Date: 20091217
  Receipt Date: 20090810
  Transmission Date: 20100525
  Serious: Yes (Hospitalization)
  Sender: FDA-Public Use
  Company Number: 001556

PATIENT
  Sex: Female

DRUGS (5)
  1. OMEPRAL / 00661201 / (OMEPRAL) [Suspect]
     Dosage: 20 MG
     Dates: end: 20090710
  2. ZYLORIC /00003301/ (ZYLORIC) (NOT SPECIFIED) [Suspect]
     Indication: HYPERURICAEMIA
     Dosage: 50 MG ORAL
     Route: 048
     Dates: end: 20090710
  3. NEORAL [Suspect]
     Dosage: 75  MG
     Dates: end: 20090717
  4. BREDININ (BREDININ) [Suspect]
     Dosage: 50 MG ORAL
     Route: 048
     Dates: end: 20090708
  5. FLUITRAN (FLUITRAN) [Suspect]
     Dosage: 2 MG ORAL
     Dates: end: 20090710

REACTIONS (3)
  - DYSGEUSIA [None]
  - PAROSMIA [None]
  - SENSORY DISTURBANCE [None]
